FAERS Safety Report 14922905 (Version 2)
Quarter: 2019Q1

REPORT INFORMATION
  Report Type: Spontaneous
  Country: US (occurrence: US)
  Receive Date: 20180522
  Receipt Date: 20190211
  Transmission Date: 20190417
  Serious: Yes (Other)
  Sender: FDA-Public Use
  Company Number: US-AUROBINDO-AUR-APL-2018-024064

PATIENT
  Age: 3 Year
  Sex: Male
  Weight: 13.61 kg

DRUGS (4)
  1. AMOXICILLIN+CLAVULANIC ACID ORAL SUSPENSION [Suspect]
     Active Substance: AMOXICILLIN\CLAVULANIC ACID
     Indication: LOWER RESPIRATORY TRACT INFECTION
  2. AMOXICILLIN+CLAVULANIC ACID ORAL SUSPENSION [Suspect]
     Active Substance: AMOXICILLIN\CLAVULANIC ACID
     Indication: EAR INFECTION
     Dosage: UNK UNK, TWO TIMES A DAY
     Route: 048
     Dates: start: 201702
  3. CEFDINIR ORAL SUSPENSION [Suspect]
     Active Substance: CEFDINIR
     Indication: LOWER RESPIRATORY TRACT INFECTION
  4. CEFDINIR ORAL SUSPENSION [Suspect]
     Active Substance: CEFDINIR
     Indication: EAR INFECTION
     Dosage: UNK UNK, TWO TIMES A DAY
     Route: 048
     Dates: start: 20180323

REACTIONS (4)
  - Oedema peripheral [Recovered/Resolved]
  - Swelling face [Recovered/Resolved]
  - Erythema multiforme [Recovered/Resolved]
  - Rash [Recovered/Resolved]
